FAERS Safety Report 7515239-6 (Version None)
Quarter: 2011Q2

REPORT INFORMATION
  Report Type: 
  Country: None (occurrence: None)
  Receive Date: 20110601
  Receipt Date: 20100602
  Transmission Date: 20111010
  Serious: No
  Sender: FDA-Public Use
  Company Number: US-PFIZER INC-2010060095

PATIENT
  Sex: Female
  Weight: 65.8 kg

DRUGS (5)
  1. NISOLDIPINE [Concomitant]
     Indication: HYPERTENSION
     Dosage: 20 MG, UNK
  2. XANAX [Concomitant]
     Dosage: 0.5 MG, UNK
  3. PREDNISOLONE [Concomitant]
     Indication: NERVE COMPRESSION
     Dosage: 4 MG, UNK
  4. CHANTIX [Suspect]
     Indication: SMOKING CESSATION THERAPY
     Dosage: 0.5 MG, 1X/DAY
     Route: 048
     Dates: start: 20100428
  5. EFFEXOR XR [Concomitant]
     Dosage: 150 MG, 2X/DAY

REACTIONS (4)
  - DEPRESSED MOOD [None]
  - DRUG PRESCRIBING ERROR [None]
  - DYSGEUSIA [None]
  - STRESS [None]
